FAERS Safety Report 23452539 (Version 2)
Quarter: 2024Q3

REPORT INFORMATION
  Report Type: Spontaneous
  Country: US (occurrence: US)
  Receive Date: 20240129
  Receipt Date: 20240809
  Transmission Date: 20241016
  Serious: Yes (Other)
  Sender: BRISTOL MYERS SQUIBB
  Company Number: US-BRISTOL-MYERS SQUIBB COMPANY-2024-013571

PATIENT
  Age: 62 Year
  Sex: Female
  Weight: 92.99 kg

DRUGS (1)
  1. REVLIMID [Suspect]
     Active Substance: LENALIDOMIDE
     Indication: Plasma cell myeloma
     Dosage: FREQUENCY: DAILY 1-21, THEN 7 DAYS OFF
     Route: 048
     Dates: start: 20210109

REACTIONS (5)
  - Immunodeficiency [Not Recovered/Not Resolved]
  - Pain in extremity [Not Recovered/Not Resolved]
  - Back pain [Not Recovered/Not Resolved]
  - Nasopharyngitis [Not Recovered/Not Resolved]
  - Laboratory test abnormal [Not Recovered/Not Resolved]

NARRATIVE: CASE EVENT DATE: 20240724
